FAERS Safety Report 15378608 (Version 2)
Quarter: 2020Q1

REPORT INFORMATION
  Report Type: Spontaneous
  Country: US (occurrence: US)
  Receive Date: 20180913
  Receipt Date: 20200306
  Transmission Date: 20200409
  Serious: No
  Sender: FDA-Public Use
  Company Number: US-PFIZER INC-2018368812

PATIENT
  Age: 5 Year
  Sex: Male

DRUGS (2)
  1. GENOTROPIN [Suspect]
     Active Substance: SOMATROPIN
     Dosage: 0.6 MG, DAILY
     Dates: start: 20160714
  2. GENOTROPIN [Suspect]
     Active Substance: SOMATROPIN
     Dosage: 0.55 MG, UNK; (ALTERNATE BETWEEN 0.5 AND 0.6MG FOR A TOTAL OF 0.55MG)
     Dates: start: 20101215

REACTIONS (4)
  - Product dose omission [Unknown]
  - Bone density increased [Unknown]
  - Intentional product misuse [Unknown]
  - Blood alkaline phosphatase increased [Unknown]
